FAERS Safety Report 5941644-5 (Version None)
Quarter: 2008Q4

REPORT INFORMATION
  Report Type: 
  Country: None (occurrence: None)
  Receive Date: 20081104
  Receipt Date: 20081104
  Transmission Date: 20090506
  Serious: Yes (Other)
  Sender: FDA-Public Use
  Company Number: None

PATIENT
  Sex: Male
  Weight: 96.1626 kg

DRUGS (1)
  1. CHANTIX [Suspect]
     Indication: EX-TOBACCO USER
     Dosage: 1 MG 2X DAILY PO
     Route: 048
     Dates: start: 20070901, end: 20080220

REACTIONS (6)
  - ACCIDENT AT WORK [None]
  - ANXIETY [None]
  - BLOOD CHOLESTEROL DECREASED [None]
  - BLOOD GLUCOSE INCREASED [None]
  - EMOTIONAL DISORDER [None]
  - PANCREATIC DISORDER [None]
